FAERS Safety Report 5706448-7 (Version None)
Quarter: 2008Q2

REPORT INFORMATION
  Report Type: 
  Country: None (occurrence: None)
  Receive Date: 20080414
  Receipt Date: 20080407
  Transmission Date: 20081010
  Serious: Yes (Other)
  Sender: FDA-Public Use
  Company Number: OSCN-PR-0803L-0168

PATIENT
  Age: 58 Year
  Sex: Male

DRUGS (1)
  1. OMNISCAN [Suspect]
     Indication: DRUG USE FOR UNKNOWN INDICATION
     Dosage: 0.10 MMOL/KG, SINGLE DOSE, I.V.
     Route: 042
     Dates: start: 20060901, end: 20060901

REACTIONS (1)
  - NEPHROGENIC SYSTEMIC FIBROSIS [None]
